FAERS Safety Report 5232393-X (Version None)
Quarter: 2007Q1

REPORT INFORMATION
  Report Type: 
  Country: None (occurrence: None)
  Receive Date: 20070207
  Receipt Date: 20070130
  Transmission Date: 20070707
  Serious: Yes (Life-Threatening, Hospitalization, Other)
  Sender: FDA-Public Use
  Company Number: JP-BRISTOL-MYERS SQUIBB COMPANY-13666912

PATIENT
  Age: 60 Year
  Sex: Male

DRUGS (5)
  1. BARACLUDE [Suspect]
     Indication: HEPATITIS B
     Route: 048
     Dates: start: 20061128, end: 20070105
  2. PARIET [Suspect]
     Indication: GASTRIC ULCER
     Route: 048
     Dates: start: 20061120, end: 20070105
  3. LASIX [Suspect]
     Indication: ASCITES
     Dosage: 20 MG 16-NOV-2006,40 MG DAILY 07-DEC-2006-11-DEC-2006,80 MG 2X 12-DEC-2006. DISCONTINUED 05-JAN-07
     Route: 048
     Dates: start: 20061116, end: 20070105
  4. SPIRONOLACTONE [Concomitant]
     Route: 048
  5. SELBEX [Concomitant]
     Route: 048

REACTIONS (1)
  - RENAL FAILURE ACUTE [None]
